FAERS Safety Report 4545750-1 (Version None)
Quarter: 2005Q1

REPORT INFORMATION
  Report Type: 
  Country: None (occurrence: None)
  Receive Date: 20050103
  Receipt Date: 20041214
  Transmission Date: 20050727
  Serious: Yes (Other)
  Sender: FDA-Public Use
  Company Number: USA040668928

PATIENT
  Age: 64 Year
  Sex: Female
  Weight: 49 kg

DRUGS (7)
  1. HUMULIN R [Suspect]
     Indication: DIABETES MELLITUS
     Dosage: 15 U DAY
     Dates: start: 19820101
  2. HUMULIN N [Suspect]
     Indication: DIABETES MELLITUS
  3. INSULIN-INSULIN-ANIMAL (INSUL [Suspect]
     Indication: DIABETES MELLITUS
     Dates: start: 19390101
  4. HUMALOG [Suspect]
     Indication: DIABETES MELLITUS
     Dosage: 9 U DAY
     Dates: start: 19960101
  5. LANTUS [Concomitant]
  6. NOVOLOG [Concomitant]
  7. NOVOLIN R [Concomitant]

REACTIONS (2)
  - MACULAR DEGENERATION [None]
  - PHARMACEUTICAL PRODUCT COMPLAINT [None]
